FAERS Safety Report 21670188 (Version 2)
Quarter: 2022Q4

REPORT INFORMATION
  Report Type: Spontaneous
  Country: DE (occurrence: DE)
  Receive Date: 20221201
  Receipt Date: 20221214
  Transmission Date: 20230113
  Serious: Yes (Life-Threatening)
  Sender: FDA-Public Use
  Company Number: DE-TEVA-2022-DE-2830921

PATIENT

DRUGS (1)
  1. METHOTREXATE [Suspect]
     Active Substance: METHOTREXATE
     Indication: Rhabdoid tumour
     Dosage: ROUTE: {INTRAVENTRICULAR}
     Route: 050

REACTIONS (3)
  - Hyponatraemia [Unknown]
  - Respiratory failure [Unknown]
  - Seizure [Unknown]
